FAERS Safety Report 7629153-9 (Version None)
Quarter: 2011Q3

REPORT INFORMATION
  Report Type: 
  Country: None (occurrence: None)
  Receive Date: 20110722
  Receipt Date: 20110707
  Transmission Date: 20111222
  Serious: Yes (Hospitalization)
  Sender: FDA-Public Use
  Company Number: PHHY2010MX63951

PATIENT
  Sex: Female

DRUGS (1)
  1. DIOVAN HCT [Suspect]
     Indication: HYPERTENSION
     Dosage: 1 DF, 320 MG VALS AND 12.5 MG HYDR
     Route: 048
     Dates: start: 20090701

REACTIONS (7)
  - SCRATCH [None]
  - SKIN BURNING SENSATION [None]
  - NECROSIS [None]
  - INFECTION [None]
  - WOUND INFECTION [None]
  - GRAFT COMPLICATION [None]
  - INJURY [None]
